FAERS Safety Report 21087862 (Version 2)
Quarter: 2022Q3

REPORT INFORMATION
  Report Type: Spontaneous
  Country: IT (occurrence: IT)
  Receive Date: 20220715
  Receipt Date: 20220720
  Transmission Date: 20221026
  Serious: Yes (Hospitalization)
  Sender: FDA-Public Use
  Company Number: IT-SHIONOGI B.V.-2022000665

PATIENT
  Age: 83 Year
  Sex: Female

DRUGS (2)
  1. LUSUTROMBOPAG [Suspect]
     Active Substance: LUSUTROMBOPAG
     Indication: Thrombocytopenia
     Dosage: UNK
     Route: 065
     Dates: start: 20220706
  2. HEPARIN [Concomitant]
     Active Substance: HEPARIN SODIUM
     Indication: Product used for unknown indication
     Route: 065

REACTIONS (2)
  - Phlebitis superficial [Recovering/Resolving]
  - Pain in extremity [Unknown]

NARRATIVE: CASE EVENT DATE: 20220701
